FAERS Safety Report 6755286-5 (Version None)
Quarter: 2010Q2

REPORT INFORMATION
  Report Type: 
  Country: None (occurrence: None)
  Receive Date: 20100602
  Receipt Date: 20100518
  Transmission Date: 20101027
  Serious: Yes (Life-Threatening, Other)
  Sender: FDA-Public Use
  Company Number: 2010SCPR000888

PATIENT
  Age: 63 Year
  Sex: Female

DRUGS (6)
  1. RANITIDINE [Suspect]
     Indication: PREMEDICATION
     Dosage: INTRAVENOUS
     Route: 042
  2. DEXCHLORPHENIRAMINE (DEXCHLORPHENIRAMINE) UNKNOWN [Suspect]
     Indication: PREMEDICATION
     Dosage: INTRAVENOUS
     Route: 042
  3. METHYLPREDNISOLONE (METHYLPREDNICOLONE) INJECTION [Concomitant]
  4. PACLITAXEL [Concomitant]
  5. CARBOPLATIN [Concomitant]
  6. GRANISETRON (GRANISETRON) [Concomitant]

REACTIONS (6)
  - ANAPHYLACTIC REACTION [None]
  - HISTAMINE LEVEL INCREASED [None]
  - LOSS OF CONSCIOUSNESS [None]
  - PULSE ABSENT [None]
  - RESPIRATORY ARREST [None]
  - TRYPTASE INCREASED [None]
